FAERS Safety Report 8134540-9 (Version None)
Quarter: 2012Q1

REPORT INFORMATION
  Report Type: 
  Country: None (occurrence: None)
  Receive Date: 20120210
  Receipt Date: 20120131
  Transmission Date: 20120608
  Serious: Yes (Hospitalization)
  Sender: FDA-Public Use
  Company Number: TPA2012A00611

PATIENT
  Sex: Male

DRUGS (1)
  1. ULORIC [Suspect]
     Indication: GOUT
     Dosage: 80 MG, 1 IN 1 D, ORAL
     Route: 048

REACTIONS (2)
  - DISEASE RECURRENCE [None]
  - GOUT [None]
